FAERS Safety Report 10068681 (Version 3)
Quarter: 2014Q2

REPORT INFORMATION
  Report Type: Spontaneous
  Country: IT (occurrence: IT)
  Receive Date: 20140409
  Receipt Date: 20140422
  Transmission Date: 20141212
  Serious: Yes (Other)
  Sender: FDA-Public Use
  Company Number: IT-ABBVIE-14P-083-1223777-00

PATIENT
  Age: 44 Year
  Sex: Male

DRUGS (3)
  1. VALPROATE SODIUM [Suspect]
     Indication: PSYCHOTIC DISORDER
     Route: 048
     Dates: start: 20130101, end: 20140204
  2. DIAZEPAM [Suspect]
     Indication: ANXIETY
     Route: 048
     Dates: start: 20130101, end: 20140204
  3. CLOZAPINE [Suspect]
     Indication: PSYCHOTIC DISORDER
     Route: 048
     Dates: start: 20130101, end: 20140204

REACTIONS (3)
  - Atrial fibrillation [Recovering/Resolving]
  - Hyponatraemia [Recovering/Resolving]
  - Confusional state [Recovering/Resolving]
